FAERS Safety Report 7102851-1 (Version None)
Quarter: 2010Q4

REPORT INFORMATION
  Report Type: 
  Country: None (occurrence: None)
  Receive Date: 20101115
  Receipt Date: 20101109
  Transmission Date: 20110411
  Serious: Yes (Hospitalization)
  Sender: FDA-Public Use
  Company Number: US-B.I. PHARMACEUTICALS,INC./RIDGEFIELD-2010-BP-09997BP

PATIENT
  Sex: Female

DRUGS (14)
  1. SPIRIVA [Suspect]
     Indication: CHRONIC OBSTRUCTIVE PULMONARY DISEASE
     Dosage: 18 MCG
     Route: 055
     Dates: start: 20090101
  2. RANEXA [Concomitant]
     Indication: ANGINA PECTORIS
     Dosage: 1000 MG
     Route: 048
  3. HYDROCHLOROTHIAZIDE [Concomitant]
     Indication: FLUID RETENTION
     Dosage: 25 MG
     Route: 048
  4. METOPROLOL [Concomitant]
     Indication: HYPERTENSION
     Dosage: 25 MG
     Route: 048
  5. LOTREL [Concomitant]
     Indication: HYPERTENSION
     Route: 048
  6. PLAVIX [Concomitant]
     Indication: BLOOD CHOLESTEROL INCREASED
     Dosage: 75 MG
     Route: 048
  7. PRAVASTATIN [Concomitant]
     Indication: BLOOD CHOLESTEROL INCREASED
     Dosage: 40 MG
     Route: 048
  8. LEXAPRO [Concomitant]
     Indication: DEPRESSION
     Dosage: 10 MG
     Route: 048
  9. PROTONIX [Concomitant]
     Indication: ABDOMINAL DISCOMFORT
     Dosage: 40 MG
     Route: 048
  10. DARVOCET-N 100 [Concomitant]
     Indication: ARTHRITIS
     Route: 048
  11. ASPIRIN [Concomitant]
     Indication: PROPHYLAXIS
     Dosage: 81 MG
     Route: 048
  12. IRON INFUSION [Concomitant]
     Indication: ANAEMIA
     Route: 042
  13. PROCRIT INFUSION [Concomitant]
     Indication: ANAEMIA
     Route: 042
  14. VITAMIN B-12 [Concomitant]

REACTIONS (4)
  - CARDIAC DISORDER [None]
  - LARYNGITIS [None]
  - PULMONARY CONGESTION [None]
  - TREMOR [None]
